FAERS Safety Report 9412755 (Version 2)
Quarter: 2013Q3

REPORT INFORMATION
  Report Type: Report from Study
  Country: FI (occurrence: FI)
  Receive Date: 20130722
  Receipt Date: 20130911
  Transmission Date: 20140515
  Serious: Yes (Life-Threatening, Hospitalization)
  Sender: FDA-Public Use
  Company Number: FI-CELGENEUS-055-21880-13071014

PATIENT
  Age: 69 Year
  Sex: Male

DRUGS (13)
  1. REVLIMID [Suspect]
     Indication: PLASMA CELL MYELOMA
     Dosage: 25 MILLIGRAM
     Route: 048
     Dates: start: 20130604, end: 20130616
  2. BORTEZOMIB [Suspect]
     Indication: PLASMA CELL MYELOMA
     Route: 058
     Dates: start: 20130604, end: 20130614
  3. DEXAMETHASONE [Suspect]
     Indication: PLASMA CELL MYELOMA
     Dosage: 19.5 MILLIGRAM
     Route: 048
     Dates: start: 20130604, end: 20130605
  4. DEXAMETHASONE [Suspect]
     Dosage: 19.5 MILLIGRAM
     Route: 048
     Dates: start: 20130607, end: 20130608
  5. DEXAMETHASONE [Suspect]
     Dosage: 19.5 MILLIGRAM
     Route: 048
     Dates: start: 20130611, end: 20130612
  6. DEXAMETHASONE [Suspect]
     Dosage: 19.5 MILLIGRAM
     Route: 048
     Dates: start: 20130614, end: 20130615
  7. KLEXANE [Concomitant]
     Indication: THROMBOSIS PROPHYLAXIS
     Dosage: 40 MILLIGRAM
     Route: 058
     Dates: start: 20130604, end: 20130616
  8. ALLONOL [Concomitant]
     Indication: PROPHYLAXIS
     Dosage: 300 MILLIGRAM
     Route: 048
     Dates: start: 20130416, end: 20130617
  9. ZOMETA [Concomitant]
     Indication: PRODUCT USED FOR UNKNOWN INDICATION
     Dosage: 4 MILLIGRAM
     Route: 041
     Dates: start: 20130607, end: 20130607
  10. KALSIPOS D [Concomitant]
     Indication: VITAMIN SUPPLEMENTATION
     Dosage: 500/400 MG/IU
     Route: 048
     Dates: start: 20130416
  11. PANACOD [Concomitant]
     Indication: PAIN
     Dosage: 5 MILLIGRAM
     Route: 048
     Dates: start: 20130607, end: 20130611
  12. OXYCONTIN [Concomitant]
     Indication: PAIN
     Dosage: 80 MILLIGRAM
     Route: 048
     Dates: start: 20130611
  13. ACLOVIR [Concomitant]
     Indication: ANTIVIRAL PROPHYLAXIS
     Dosage: 800 MILLIGRAM
     Route: 048
     Dates: start: 20130604

REACTIONS (2)
  - Hepatic enzyme increased [Recovered/Resolved]
  - Blood alkaline phosphatase increased [Recovered/Resolved]
